FAERS Safety Report 8443392-9 (Version None)
Quarter: 2012Q2

REPORT INFORMATION
  Report Type: 
  Country: None (occurrence: None)
  Receive Date: 20120618
  Receipt Date: 20120607
  Transmission Date: 20120825
  Serious: Yes (Hospitalization)
  Sender: FDA-Public Use
  Company Number: JP-BIOGENIDEC-2012BI020785

PATIENT
  Age: 38 Year
  Sex: Male

DRUGS (5)
  1. AVONEX [Suspect]
     Route: 030
     Dates: start: 20081225, end: 20090226
  2. AVONEX [Suspect]
     Route: 030
     Dates: start: 20090226, end: 20090402
  3. AVONEX [Suspect]
     Route: 030
     Dates: start: 20081218, end: 20081225
  4. AVONEX [Suspect]
     Indication: RELAPSING-REMITTING MULTIPLE SCLEROSIS
     Route: 030
     Dates: start: 20081211, end: 20081218
  5. AVONEX [Suspect]
     Route: 030
     Dates: start: 20090402

REACTIONS (2)
  - EPIDIDYMITIS [None]
  - LIVER FUNCTION TEST ABNORMAL [None]
